FAERS Safety Report 11214853 (Version 2)
Quarter: 2015Q3

REPORT INFORMATION
  Report Type: Spontaneous
  Country: US (occurrence: None)
  Receive Date: 20150622
  Receipt Date: 20150709
  Transmission Date: 20151125
  Serious: Yes (Other)
  Sender: FDA-Public Use
  Company Number: 1713747-2015-999179

PATIENT
  Age: 77 Year
  Sex: Female

DRUGS (16)
  1. DELFLEX [Suspect]
     Active Substance: CALCIUM CHLORIDE\DEXTROSE MONOHYDRATE\MAGNESIUM CHLORIDE\SODIUM CHLORIDE\SODIUM LACTATE
     Indication: PERITONEAL DIALYSIS
     Route: 033
     Dates: start: 20140905
  2. LIBERTY CYCLER [Concomitant]
     Active Substance: DEVICE
  3. CALCIUM ACETATE. [Concomitant]
     Active Substance: CALCIUM ACETATE
  4. MINOXIDIL. [Concomitant]
     Active Substance: MINOXIDIL
  5. INSULIN [Concomitant]
     Active Substance: INSULIN NOS
  6. OMEPRAZOLE. [Concomitant]
     Active Substance: OMEPRAZOLE
  7. NEPHROCAP [Concomitant]
  8. TORSEMIDE. [Concomitant]
     Active Substance: TORSEMIDE
  9. VITAMIN D3 [Concomitant]
     Active Substance: CHOLECALCIFEROL
  10. ALPRAZOLAM. [Concomitant]
     Active Substance: ALPRAZOLAM
  11. LIBERTY CYCLER SET [Concomitant]
     Active Substance: DEVICE
  12. CARVEDILOL. [Concomitant]
     Active Substance: CARVEDILOL
  13. TEMAZEPAM. [Concomitant]
     Active Substance: TEMAZEPAM
  14. CALCITRIOL. [Concomitant]
     Active Substance: CALCITRIOL
  15. CITALOPRAM [Concomitant]
     Active Substance: CITALOPRAM HYDROBROMIDE
  16. PRAVASTATIN [Concomitant]
     Active Substance: PRAVASTATIN\PRAVASTATIN SODIUM

REACTIONS (3)
  - Depressed level of consciousness [None]
  - Blood glucose decreased [None]
  - Device malfunction [None]

NARRATIVE: CASE EVENT DATE: 20150519
